FAERS Safety Report 8613433-4 (Version None)
Quarter: 2012Q3

REPORT INFORMATION
  Report Type: 
  Country: None (occurrence: None)
  Receive Date: 20120822
  Receipt Date: 20120809
  Transmission Date: 20120928
  Serious: Yes (Death)
  Sender: FDA-Public Use
  Company Number: US-MYLANLABS-2008S1011812

PATIENT
  Age: 28 Year
  Sex: Male
  Weight: 82.56 kg

DRUGS (8)
  1. FENTANYL-100 [Suspect]
     Indication: NECK PAIN
     Dosage: Q3D
     Route: 062
  2. OXYCODONE AND ACETAMINOPHEN [Suspect]
     Indication: NECK PAIN
     Dosage: 1-2 TABS PO Q6 HOURS PRN
     Route: 048
  3. AMITRIPTYLINE HYDROCHLORIDE [Concomitant]
  4. GABAPENTIN [Concomitant]
  5. TOPAMAX [Concomitant]
  6. HYDROXYZINE PAMOATE [Concomitant]
     Indication: MUSCLE SPASMS
     Dosage: FOR SPASMS AND PAIN
     Route: 048
  7. FENTANYL-100 [Suspect]
     Dosage: Q3D
     Route: 062
  8. LYRICA [Concomitant]
     Route: 048

REACTIONS (3)
  - OVERDOSE [None]
  - SOMNAMBULISM [None]
  - TOXICITY TO VARIOUS AGENTS [None]
